FAERS Safety Report 5377849-4 (Version None)
Quarter: 2007Q3

REPORT INFORMATION
  Report Type: 
  Country: None (occurrence: None)
  Receive Date: 20070703
  Receipt Date: 20070625
  Transmission Date: 20080115
  Serious: Yes (Hospitalization)
  Sender: FDA-Public Use
  Company Number: KE-GILEAD-2007-0012531

PATIENT
  Age: 21 Year
  Sex: Female
  Weight: 44 kg

DRUGS (6)
  1. EMTRICITABINE/TENOFOVIR DISOPROXIL FUMARATE [Suspect]
     Indication: HIV INFECTION
     Route: 048
     Dates: start: 20060622
  2. KALETRA [Suspect]
     Indication: HIV INFECTION
     Route: 048
     Dates: start: 20060622
  3. SEPTRIN [Concomitant]
  4. VITACAP [Concomitant]
  5. DEPO-PROVERA [Concomitant]
     Route: 030
  6. PHENOBARBITONE [Concomitant]

REACTIONS (1)
  - PSYCHOTIC DISORDER [None]
